FAERS Safety Report 11728025 (Version 2)
Quarter: 2015Q4

REPORT INFORMATION
  Report Type: Spontaneous
  Country: US (occurrence: US)
  Receive Date: 20151112
  Receipt Date: 20151123
  Transmission Date: 20160304
  Serious: No
  Sender: FDA-Public Use
  Company Number: US-ELI_LILLY_AND_COMPANY-US201511001902

PATIENT
  Sex: Female

DRUGS (4)
  1. HUMALOG MIX75/25 [Interacting]
     Active Substance: INSULIN LISPRO
     Dosage: 78 U, EACH EVENING
     Route: 065
     Dates: start: 201509, end: 20151110
  2. LOPRESSOR [Interacting]
     Active Substance: METOPROLOL TARTRATE
     Indication: BLOOD PRESSURE ABNORMAL
     Route: 065
  3. HUMALOG MIX75/25 [Interacting]
     Active Substance: INSULIN LISPRO
     Dosage: 114 U, EACH MORNING
     Route: 065
     Dates: start: 201509, end: 20151110
  4. HUMALOG MIX75/25 [Suspect]
     Active Substance: INSULIN LISPRO
     Indication: DIABETES MELLITUS
     Dosage: UNK
     Route: 065
     Dates: start: 201502

REACTIONS (7)
  - Burning sensation [Unknown]
  - Drug interaction [Unknown]
  - Hypertension [Unknown]
  - Urticaria [Recovered/Resolved]
  - Itching scar [Unknown]
  - Drug ineffective [Unknown]
  - Drug hypersensitivity [Unknown]

NARRATIVE: CASE EVENT DATE: 20151108
